FAERS Safety Report 14956791 (Version 1)
Quarter: 2018Q2

REPORT INFORMATION
  Report Type: Spontaneous
  Country: FR (occurrence: FR)
  Receive Date: 20180531
  Receipt Date: 20180531
  Transmission Date: 20180711
  Serious: Yes (Other)
  Sender: FDA-Public Use
  Company Number: FR-MERCK KGAA-2048773

PATIENT
  Age: 35 Year
  Sex: Female

DRUGS (1)
  1. NOVOTHYROX [Suspect]
     Active Substance: LEVOTHYROXINE SODIUM
     Indication: HYPOTHYROIDISM
     Dates: start: 201703

REACTIONS (34)
  - Joint stiffness [None]
  - Family stress [None]
  - Arthralgia [Recovering/Resolving]
  - Feeling abnormal [None]
  - Palpitations [None]
  - Decreased interest [None]
  - Emotional disorder [Recovering/Resolving]
  - Alopecia [Recovering/Resolving]
  - Crying [None]
  - Anxiety [Recovering/Resolving]
  - Neck pain [None]
  - Memory impairment [None]
  - Disturbance in attention [None]
  - Weight bearing difficulty [None]
  - Musculoskeletal pain [None]
  - Tri-iodothyronine free increased [None]
  - Loss of personal independence in daily activities [None]
  - Pain in extremity [None]
  - Angina pectoris [None]
  - Vertigo [Recovering/Resolving]
  - Myalgia [Recovering/Resolving]
  - Paraesthesia [Recovering/Resolving]
  - Irritability [None]
  - Stress [None]
  - Tension [None]
  - Social avoidant behaviour [None]
  - Fatigue [None]
  - Depressed mood [None]
  - Diarrhoea [None]
  - Asthenia [Recovering/Resolving]
  - Tinnitus [None]
  - Blood thyroid stimulating hormone decreased [None]
  - Mood swings [None]
  - Insomnia [Recovering/Resolving]

NARRATIVE: CASE EVENT DATE: 2017
